FAERS Safety Report 21478999 (Version 1)
Quarter: 2022Q4

REPORT INFORMATION
  Report Type: Spontaneous
  Country: US (occurrence: None)
  Receive Date: 20221018
  Receipt Date: 20221018
  Transmission Date: 20230113
  Serious: No
  Sender: FDA-Public Use
  Company Number: None

PATIENT
  Age: 66 Year
  Sex: Female
  Weight: 65.32 kg

DRUGS (10)
  1. CAPECITABINE [Suspect]
     Active Substance: CAPECITABINE
     Indication: Breast cancer female
     Dosage: FREQUENCY : TWICE A DAY;?
     Route: 048
  2. CAPECITABINE [Suspect]
     Active Substance: CAPECITABINE
     Indication: Breast cancer female
     Dosage: FREQUENCY : TWICE A DAY;?
     Route: 048
  3. BISACODYL [Concomitant]
     Active Substance: BISACODYL
  4. DILTIAZEM [Concomitant]
     Active Substance: DILTIAZEM
  5. DOCUSATE [Concomitant]
     Active Substance: DOCUSATE
  6. ELIQUIS [Concomitant]
     Active Substance: APIXABAN
  7. KEYTRUDA [Concomitant]
     Active Substance: PEMBROLIZUMAB
  8. LIDOCAINE-SODIUM BICARBONATE [Concomitant]
  9. ONDANSETRON [Concomitant]
     Active Substance: ONDANSETRON
  10. TYLENOL [Concomitant]
     Active Substance: ACETAMINOPHEN

REACTIONS (1)
  - Pneumonia [None]
